FAERS Safety Report 19472796 (Version 1)
Quarter: 2021Q2

REPORT INFORMATION
  Report Type: Spontaneous
  Country: JP (occurrence: JP)
  Receive Date: 20210629
  Receipt Date: 20210629
  Transmission Date: 20210717
  Serious: Yes (Hospitalization, Other)
  Sender: FDA-Public Use
  Company Number: JP-AMGEN-JPNSP2021097249

PATIENT
  Age: 83 Year
  Sex: Male

DRUGS (5)
  1. EVENITY [Suspect]
     Active Substance: ROMOSOZUMAB-AQQG
     Indication: OSTEOPOROSIS
     Dosage: 210 MILLIGRAM
     Route: 058
     Dates: start: 20210422, end: 2021
  2. CELECOX [Concomitant]
     Active Substance: CELECOXIB
     Dosage: UNK
  3. MUCOSTA [Concomitant]
     Active Substance: REBAMIPIDE
     Dosage: UNK
  4. MOHRUS [Concomitant]
     Active Substance: KETOPROFEN
     Dosage: UNK
  5. EDIROL [Concomitant]
     Active Substance: ELDECALCITOL
     Dosage: UNK

REACTIONS (1)
  - Pneumonia [Unknown]

NARRATIVE: CASE EVENT DATE: 2021
